FAERS Safety Report 19750865 (Version 2)
Quarter: 2021Q3

REPORT INFORMATION
  Report Type: Report from Study
  Country: US (occurrence: US)
  Receive Date: 20210826
  Receipt Date: 20210909
  Transmission Date: 20211014
  Serious: Yes (Death, Other)
  Sender: FDA-Public Use
  Company Number: US-MYLANLABS-2021M1054925

PATIENT
  Age: 28 Year
  Sex: Male

DRUGS (1)
  1. TOBI [Suspect]
     Active Substance: TOBRAMYCIN
     Indication: PNEUMONIA PSEUDOMONAL
     Dosage: 300 MILLIGRAM, BID (12 HRS APART FOR ALTERNATING DAYS 28 ON AND 28 OFF.)

REACTIONS (1)
  - Death [Fatal]
